FAERS Safety Report 20063689 (Version 2)
Quarter: 2021Q4

REPORT INFORMATION
  Report Type: Spontaneous
  Country: TR (occurrence: TR)
  Receive Date: 20211112
  Receipt Date: 20211130
  Transmission Date: 20220303
  Serious: Yes (Hospitalization, Other)
  Sender: FDA-Public Use
  Company Number: TR-AMGEN-TURSP2021172273

PATIENT
  Age: 16 Year
  Sex: Male

DRUGS (2)
  1. CINACALCET HYDROCHLORIDE [Suspect]
     Active Substance: CINACALCET HYDROCHLORIDE
     Indication: Blood parathyroid hormone increased
     Dosage: UNK
     Route: 065
  2. PAMIDRONATE [Concomitant]
     Active Substance: PAMIDRONATE DISODIUM

REACTIONS (5)
  - Tricuspid valve incompetence [Recovering/Resolving]
  - Acute coronary syndrome [Recovering/Resolving]
  - Lung disorder [Recovering/Resolving]
  - Myocardial infarction [Recovering/Resolving]
  - Off label use [Unknown]
